FAERS Safety Report 7814506-6 (Version None)
Quarter: 2011Q4

REPORT INFORMATION
  Report Type: 
  Country: None (occurrence: None)
  Receive Date: 20111014
  Receipt Date: 20111014
  Transmission Date: 20120403
  Serious: Yes (Other)
  Sender: FDA-Public Use
  Company Number: PHHO2008US13423

PATIENT
  Sex: Female
  Weight: 87.9 kg

DRUGS (1)
  1. GILENYA [Suspect]
     Indication: MULTIPLE SCLEROSIS
     Dosage: 0.5 MG, UNK
     Route: 048
     Dates: start: 20080312, end: 20080515

REACTIONS (5)
  - VENTRICULAR EXTRASYSTOLES [None]
  - SUPRAVENTRICULAR EXTRASYSTOLES [None]
  - VENTRICULAR TACHYCARDIA [None]
  - RHYTHM IDIOVENTRICULAR [None]
  - LEFT ATRIAL DILATATION [None]
